FAERS Safety Report 24620235 (Version 6)
Quarter: 2025Q1

REPORT INFORMATION
  Report Type: Spontaneous
  Country: US (occurrence: US)
  Receive Date: 20241114
  Receipt Date: 20250221
  Transmission Date: 20250409
  Serious: No
  Sender: PFIZER
  Company Number: US-PFIZER INC-202400294719

PATIENT
  Age: 68 Year
  Sex: Female

DRUGS (3)
  1. LORBRENA [Suspect]
     Active Substance: LORLATINIB
     Indication: Lung adenocarcinoma stage IV
     Route: 048
     Dates: start: 20240710
  2. LORBRENA [Suspect]
     Active Substance: LORLATINIB
     Dosage: 75 MG, 1X/DAY (25 MG TABLET TAKE 3 TABLETS (75 MG) ONCE DAILY)
     Route: 048
  3. LORBRENA [Suspect]
     Active Substance: LORLATINIB
     Dosage: 100 MG, 1X/DAY (4 TAB(S), DAILY)
     Route: 048

REACTIONS (1)
  - Laryngitis [Unknown]
